FAERS Safety Report 5140750-5 (Version None)
Quarter: 2006Q4

REPORT INFORMATION
  Report Type: 
  Country: None (occurrence: None)
  Receive Date: 20061031
  Receipt Date: 20061023
  Transmission Date: 20070319
  Serious: Yes (Hospitalization)
  Sender: FDA-Public Use
  Company Number: AT-ABBOTT-06P-009-0347830-00

PATIENT
  Age: 50 Year
  Sex: Female

DRUGS (2)
  1. KLACID UNO [Suspect]
     Indication: DRUG USE FOR UNKNOWN INDICATION
     Route: 048
     Dates: start: 20060527, end: 20060528
  2. KLACID UNO [Suspect]
     Route: 048
     Dates: start: 20060529, end: 20060531

REACTIONS (5)
  - CONFUSIONAL STATE [None]
  - PSYCHOTIC DISORDER [None]
  - SLEEP DISORDER [None]
  - SPEECH DISORDER [None]
  - TINNITUS [None]
